FAERS Safety Report 9176629 (Version 1)
Quarter: 2013Q1

REPORT INFORMATION
  Report Type: Spontaneous
  Country: BR (occurrence: BR)
  Receive Date: 20130321
  Receipt Date: 20130321
  Transmission Date: 20140127
  Serious: Yes (Hospitalization, Other)
  Sender: FDA-Public Use
  Company Number: BR-SANOFI-AVENTIS-2013SA027081

PATIENT
  Sex: Male
  Weight: 91 kg

DRUGS (4)
  1. LANTUS [Suspect]
     Indication: TYPE 2 DIABETES MELLITUS
     Route: 058
     Dates: start: 2002
  2. RIVOTRIL [Concomitant]
     Indication: ANXIETY
     Route: 048
  3. ATENOLOL [Concomitant]
     Indication: BLOOD PRESSURE
     Route: 048
  4. SIMVASTATIN [Concomitant]
     Route: 048

REACTIONS (3)
  - Infarction [Recovering/Resolving]
  - Cardiac operation [Recovering/Resolving]
  - Abscess [Recovering/Resolving]
